FAERS Safety Report 9867118 (Version 1)
Quarter: 2014Q1

REPORT INFORMATION
  Report Type: Spontaneous
  Country: US (occurrence: None)
  Receive Date: 20140203
  Receipt Date: 20140203
  Transmission Date: 20141002
  Serious: Yes (Disabling, Other)
  Sender: FDA-Public Use
  Company Number: None

PATIENT
  Sex: Female
  Weight: 68.04 kg

DRUGS (3)
  1. PRAMIPEXOLE DIHYDROCHLORIDE [Suspect]
     Indication: RESTLESS LEGS SYNDROME
     Dosage: .25MG  1 TABLET AT BEDTIME  ONCE AT BEDTIME  MOUTH
     Route: 048
     Dates: start: 2007, end: 201312
  2. OMEPRAZOLE [Concomitant]
  3. AZALASTINE [Concomitant]

REACTIONS (3)
  - Cough [None]
  - Dyspnoea [None]
  - Somnolence [None]
